FAERS Safety Report 4605289-1 (Version None)
Quarter: 2005Q2

REPORT INFORMATION
  Report Type: 
  Country: None (occurrence: None)
  Receive Date: 20050217
  Receipt Date: 20041109
  Transmission Date: 20051028
  Serious: No
  Sender: FDA-Public Use
  Company Number: S04-USA-07406-01

PATIENT
  Sex: Female

DRUGS (2)
  1. NAMENDA [Suspect]
  2. REMINYL [Concomitant]

REACTIONS (1)
  - SALIVARY HYPERSECRETION [None]
